FAERS Safety Report 7069621-4 (Version None)
Quarter: 2010Q4

REPORT INFORMATION
  Report Type: 
  Country: None (occurrence: None)
  Receive Date: 20101028
  Receipt Date: 20100415
  Transmission Date: 20110411
  Serious: No
  Sender: FDA-Public Use
  Company Number: US-WYE-H14419510

PATIENT
  Sex: Female
  Weight: 61.29 kg

DRUGS (9)
  1. PROTONIX [Suspect]
     Indication: GASTROOESOPHAGEAL REFLUX DISEASE
     Route: 048
     Dates: start: 20100323
  2. PROTONIX [Suspect]
     Indication: PAIN
  3. PROTONIX [Suspect]
     Indication: DISCOMFORT
  4. PROTONIX [Suspect]
     Indication: NAUSEA
  5. PROTONIX [Suspect]
     Indication: FLATULENCE
  6. ACETYLSALICYLIC ACID [Concomitant]
  7. VITAMIN D [Concomitant]
  8. DIOVAN [Concomitant]
  9. CALCIUM [Concomitant]

REACTIONS (1)
  - DRUG INEFFECTIVE [None]
